FAERS Safety Report 8394325-5 (Version None)
Quarter: 2012Q2

REPORT INFORMATION
  Report Type: 
  Country: None (occurrence: None)
  Receive Date: 20120530
  Receipt Date: 20120522
  Transmission Date: 20120825
  Serious: Yes (Other)
  Sender: FDA-Public Use
  Company Number: US-GENZYME-POMP-1001874

PATIENT
  Sex: Male

DRUGS (2)
  1. LUMIZYME [Suspect]
  2. LUMIZYME [Suspect]
     Indication: GLYCOGEN STORAGE DISEASE TYPE II
     Dosage: 1800 MG, Q2W
     Route: 042

REACTIONS (2)
  - HIP FRACTURE [None]
  - FALL [None]
